FAERS Safety Report 8307685-8 (Version None)
Quarter: 2012Q2

REPORT INFORMATION
  Report Type: 
  Country: None (occurrence: None)
  Receive Date: 20120424
  Receipt Date: 20120424
  Transmission Date: 20120825
  Serious: Yes (Life-Threatening)
  Sender: FDA-Public Use
  Company Number: None

PATIENT
  Age: 61 Year
  Sex: Male
  Weight: 83.914 kg

DRUGS (1)
  1. SIMVASTATIN [Suspect]
     Indication: BLOOD PRESSURE INCREASED
     Dosage: 80 MG
     Route: 048
     Dates: start: 20080724, end: 20080822

REACTIONS (3)
  - ASTHENIA [None]
  - MUSCULAR DYSTROPHY [None]
  - PAIN IN EXTREMITY [None]
